FAERS Safety Report 8563554-X (Version None)
Quarter: 2012Q3

REPORT INFORMATION
  Report Type: 
  Country: None (occurrence: None)
  Receive Date: 20120803
  Receipt Date: 20120723
  Transmission Date: 20120928
  Serious: Yes (Hospitalization)
  Sender: FDA-Public Use
  Company Number: US-009507513-1207USA009975

PATIENT

DRUGS (12)
  1. LIDOCAINE [Concomitant]
  2. LANTUS [Concomitant]
  3. METOPROLOL TARTRATE [Concomitant]
  4. ZOCOR [Suspect]
     Dosage: 20 MG, QD
     Route: 048
  5. CYMBALTA [Suspect]
     Dosage: 69 MG, QD
     Route: 048
  6. INSULIN LISPRO [Concomitant]
  7. VITAMINS (UNSPECIFIED) [Concomitant]
  8. ACETAMINOPHEN [Suspect]
     Dosage: UP TO FOUR TIMES A DAY, AS NEEDED
     Route: 048
  9. WARFARIN SODIUM [Suspect]
     Dosage: 1 TO 6 MG, QD
     Route: 048
  10. AMLODIPINE BESYLATE [Concomitant]
  11. GABAPENTIN [Concomitant]
  12. OXYCODONE HCL [Concomitant]

REACTIONS (5)
  - INTERNATIONAL NORMALISED RATIO INCREASED [None]
  - TRANSAMINASES INCREASED [None]
  - ANAEMIA [None]
  - INTERNATIONAL NORMALISED RATIO DECREASED [None]
  - DRUG INTERACTION [None]
